FAERS Safety Report 6525842-8 (Version None)
Quarter: 2010Q1

REPORT INFORMATION
  Report Type: 
  Country: None (occurrence: None)
  Receive Date: 20100104
  Receipt Date: 20091224
  Transmission Date: 20100710
  Serious: Yes (Hospitalization)
  Sender: FDA-Public Use
  Company Number: B0619983A

PATIENT
  Age: 62 Year
  Sex: Female

DRUGS (4)
  1. VALTREX [Suspect]
     Indication: HERPES ZOSTER
     Dosage: 500MG PER DAY
     Route: 048
     Dates: start: 20091217, end: 20091218
  2. RENAGEL [Concomitant]
     Route: 048
  3. MANIDIPINE HYDROCHLORIDE [Concomitant]
     Route: 048
  4. FERROMIA [Concomitant]
     Route: 048

REACTIONS (3)
  - DELIRIUM [None]
  - DYSARTHRIA [None]
  - NERVOUS SYSTEM DISORDER [None]
